FAERS Safety Report 10469141 (Version 1)
Quarter: 2014Q3

REPORT INFORMATION
  Report Type: Spontaneous
  Country: US (occurrence: None)
  Receive Date: 20140922
  Receipt Date: 20140922
  Transmission Date: 20150326
  Serious: Yes (Death)
  Sender: FDA-Public Use
  Company Number: None

PATIENT
  Age: 60 Year
  Sex: Male
  Weight: 104.33 kg

DRUGS (3)
  1. LEUCOVORIN [Concomitant]
     Active Substance: LEUCOVORIN
  2. 5-FU [Concomitant]
     Active Substance: FLUOROURACIL
  3. OXALIPLATIN. [Suspect]
     Active Substance: OXALIPLATIN
     Indication: COLON CANCER STAGE III
     Dosage: 190 MG?EVERY 2 WEEKS?INTRAVENOUS
     Route: 042
     Dates: start: 20140320, end: 20140731

REACTIONS (5)
  - Pyrexia [None]
  - Lung infiltration [None]
  - Acute respiratory distress syndrome [None]
  - Cough [None]
  - No therapeutic response [None]

NARRATIVE: CASE EVENT DATE: 20140731
